FAERS Safety Report 9467981 (Version 1)
Quarter: 2013Q3

REPORT INFORMATION
  Report Type: Report from Study
  Country: US (occurrence: US)
  Receive Date: 20130821
  Receipt Date: 20130821
  Transmission Date: 20140515
  Serious: Yes (Life-Threatening)
  Sender: FDA-Public Use
  Company Number: US-US-EMD SERONO, INC.-7232076

PATIENT
  Age: 56 Year
  Sex: Female
  Weight: 95 kg

DRUGS (5)
  1. REBIF [Suspect]
     Indication: MULTIPLE SCLEROSIS
     Route: 058
     Dates: start: 20130403, end: 201307
  2. REBIF [Suspect]
     Route: 058
     Dates: start: 201308
  3. TYLENOL /00020001/ [Suspect]
     Indication: PAIN
     Dosage: EVERY FOUR HOURS
  4. MORPHINE [Concomitant]
     Indication: PAIN
     Dates: start: 2004, end: 201307
  5. TRAMADOL [Concomitant]
     Indication: PAIN

REACTIONS (3)
  - Hepatic failure [Recovered/Resolved]
  - Renal failure [Recovered/Resolved]
  - Overdose [Recovered/Resolved]
